FAERS Safety Report 6093745-1 (Version None)
Quarter: 2009Q1

REPORT INFORMATION
  Report Type: 
  Country: None (occurrence: None)
  Receive Date: 20090223
  Receipt Date: 20090223
  Transmission Date: 20090719
  Serious: Yes (Other)
  Sender: FDA-Public Use
  Company Number: None

PATIENT
  Age: 29 Year
  Sex: Female
  Weight: 53.5244 kg

DRUGS (1)
  1. YAZ [Suspect]
     Indication: MUSCLE SPASMS
     Dosage: 3MG DROSPIRENONE 20MCG ETHINYL 1 PER DAY PO
     Route: 048
     Dates: start: 20080901, end: 20090201

REACTIONS (10)
  - ANOREXIA [None]
  - ANXIETY [None]
  - DEPRESSION [None]
  - EAR DISORDER [None]
  - FEAR [None]
  - IMPAIRED WORK ABILITY [None]
  - INSOMNIA [None]
  - NERVOUSNESS [None]
  - PANIC ATTACK [None]
  - TACHYCARDIA [None]
